FAERS Safety Report 4534560-7 (Version None)
Quarter: 2004Q4

REPORT INFORMATION
  Report Type: 
  Country: None (occurrence: None)
  Receive Date: 20041214
  Receipt Date: 20041020
  Transmission Date: 20050328
  Serious: No
  Sender: FDA-Public Use
  Company Number: 2004240789US

PATIENT
  Age: 80 Year
  Sex: Female
  Weight: 65.8 kg

DRUGS (7)
  1. BEXTRA [Suspect]
     Indication: ARTHRITIS
     Dosage: 10 MG, QD
     Dates: start: 20040903, end: 20041020
  2. TYLENOL [Concomitant]
  3. XALATAN [Concomitant]
  4. COSOPT [Concomitant]
  5. THYROID TAB [Concomitant]
  6. MEBARAL (METHYLPHENOBARBITAL) [Concomitant]
  7. ANTIDEPRESSANTS [Concomitant]

REACTIONS (3)
  - BEDRIDDEN [None]
  - FATIGUE [None]
  - MALAISE [None]
